FAERS Safety Report 7069443-4 (Version None)
Quarter: 2010Q4

REPORT INFORMATION
  Report Type: 
  Country: None (occurrence: None)
  Receive Date: 20101028
  Receipt Date: 20101021
  Transmission Date: 20110411
  Serious: Yes (Death)
  Sender: FDA-Public Use
  Company Number: DK-GILEAD-2010-0032637

PATIENT
  Age: 38 Year
  Sex: Male
  Weight: 68 kg

DRUGS (10)
  1. EFAVIRENZ, EMTRICITABINE, TENOFOVIR DISOPROXIL FUMARATE [Suspect]
     Indication: HIV INFECTION
     Route: 048
     Dates: start: 20100820, end: 20100910
  2. ABACAVIR SULFATE AND LAMIVUDINE [Suspect]
     Indication: HIV INFECTION
     Route: 048
     Dates: start: 20100910, end: 20100912
  3. DARUNAVIR [Suspect]
     Indication: HIV INFECTION
     Route: 048
     Dates: start: 20100910, end: 20100912
  4. RITONAVIR [Suspect]
     Indication: HIV INFECTION
     Route: 048
     Dates: start: 20100910, end: 20100912
  5. HUMAN ALBUMINE [Concomitant]
  6. PANTOLOC [Concomitant]
  7. ZINACEF [Concomitant]
  8. MEROPENEM [Concomitant]
  9. POTASSIUM ELIXIR [Concomitant]
  10. PREDNISOLONE [Concomitant]

REACTIONS (1)
  - HEPATIC FAILURE [None]
